FAERS Safety Report 8602462-2 (Version None)
Quarter: 2012Q3

REPORT INFORMATION
  Report Type: 
  Country: None (occurrence: None)
  Receive Date: 20120817
  Receipt Date: 20120810
  Transmission Date: 20120928
  Serious: Yes (Death, Life-Threatening, Hospitalization, Disabling)
  Sender: FDA-Public Use
  Company Number: US-ROCHE-1054992

PATIENT
  Sex: Female
  Weight: 57.3 kg

DRUGS (36)
  1. PACLITAXEL [Suspect]
     Indication: BREAST CANCER METASTATIC
     Dosage: LAST DOSE PRIOR TO SAE: 09/MAR/2012
     Route: 042
  2. NAPROXEN [Concomitant]
     Indication: BONE PAIN
     Dates: start: 20111219
  3. DEXAMETHASONE [Concomitant]
     Dates: start: 20120106, end: 20120309
  4. ZOMETA [Concomitant]
     Dates: start: 20120127, end: 20120309
  5. DEXTROSE [Concomitant]
     Dates: start: 20120329, end: 20120331
  6. ATIVAN [Concomitant]
     Indication: ANXIETY
     Dates: start: 20120106
  7. DIPHENHYDRAMINE HCL [Concomitant]
     Dates: start: 20120106, end: 20120309
  8. NEULASTA [Concomitant]
     Dates: start: 20120107, end: 20120312
  9. LORTAB [Concomitant]
     Dates: start: 20120120
  10. ROBAXIN [Concomitant]
     Dates: start: 20120127, end: 20120327
  11. FOSPHENYTOIN SODIUM [Concomitant]
     Indication: CONVULSION
     Dates: start: 20120328, end: 20120330
  12. CIPROFLOXACIN [Concomitant]
     Indication: URINARY TRACT INFECTION
     Dates: start: 20120222, end: 20120228
  13. MAGNESIUM SULFATE [Concomitant]
     Indication: HYPOMAGNESAEMIA
     Dates: start: 20120330, end: 20120402
  14. LASIX [Concomitant]
     Dates: start: 20120402, end: 20120402
  15. FERROUS SULFATE TAB [Concomitant]
     Indication: ANAEMIA
     Dates: start: 20111219, end: 20120330
  16. REMERON [Concomitant]
     Indication: DEPRESSION
     Dates: start: 20120309, end: 20120327
  17. ARTIFICIAL TEARS [Concomitant]
     Dates: start: 20120328, end: 20120403
  18. AMLODIPINE BESYLATE [Concomitant]
     Indication: HYPERTENSION
     Dates: start: 20111219
  19. BENADRYL [Concomitant]
     Dates: start: 20111219
  20. HYDROCODONE [Concomitant]
     Indication: PAIN
     Dates: start: 20120106
  21. CELEXA [Concomitant]
     Indication: DEPRESSION
     Dates: start: 20120106, end: 20120330
  22. ACETAMINOPHEN [Concomitant]
     Dates: start: 20120221, end: 20120404
  23. LORAZEPAM [Concomitant]
     Indication: ANXIETY
     Dates: start: 20120328, end: 20120404
  24. PHENERGAN HCL [Concomitant]
     Dates: start: 20111219, end: 20120327
  25. POTASSIUM CHLORIDE [Concomitant]
     Indication: HYPOKALAEMIA
     Dates: start: 20120309, end: 20120401
  26. HYDROCODONE BITARTRATE + ACETAMINOPHEN [Concomitant]
     Indication: BREAST PAIN
     Dates: start: 20120221, end: 20120327
  27. PROTONIX [Concomitant]
     Dates: start: 20120327, end: 20120401
  28. ALOXI [Concomitant]
     Indication: NAUSEA
     Dates: start: 20120106, end: 20120309
  29. MINERAL OIL [Concomitant]
     Indication: DRY SKIN
     Dates: start: 20120327, end: 20120404
  30. INSULIN ASPART [Concomitant]
     Indication: HYPERGLYCAEMIA
     Dates: start: 20120330, end: 20120404
  31. MORPHINE SULFATE [Concomitant]
     Indication: PAIN
     Dates: start: 20120328, end: 20120404
  32. HERCEPTIN [Suspect]
     Indication: BREAST CANCER METASTATIC
     Dosage: LAST DOSE PRIOR TO SAE 09/MAR/2012, LAST DOSE TAKEN: 344 MG
     Route: 042
     Dates: start: 20120106
  33. DOCETAXEL [Suspect]
     Indication: BREAST CANCER METASTATIC
     Dosage: LAST DOSE PRIOR TO SAE 09/MAR/2012, LAST DOSE TAKEN: 167 MG
     Route: 042
     Dates: start: 20120106
  34. ZOFRAN [Concomitant]
     Dates: start: 20111219, end: 20120327
  35. COCAINE [Concomitant]
     Dates: start: 20120221, end: 20120327
  36. UDDERLY SMOOTH CREAM [Concomitant]
     Dates: start: 20120309

REACTIONS (7)
  - ACUTE RESPIRATORY FAILURE [None]
  - SEPSIS [None]
  - CONVULSION [None]
  - HYPOTENSION [None]
  - FAILURE TO THRIVE [None]
  - PNEUMONIA STREPTOCOCCAL [None]
  - HAEMORRHAGE INTRACRANIAL [None]
